FAERS Safety Report 9291994 (Version 2)
Quarter: 2013Q2

REPORT INFORMATION
  Report Type: Spontaneous
  Country: US (occurrence: US)
  Receive Date: 20130516
  Receipt Date: 20130620
  Transmission Date: 20140414
  Serious: No
  Sender: FDA-Public Use
  Company Number: US-PFIZER INC-2013148455

PATIENT
  Age: 57 Year
  Sex: Female
  Weight: 87.08 kg

DRUGS (1)
  1. EFFEXOR XR [Suspect]
     Indication: ANXIETY
     Dosage: 150 MG, 1X/DAY (1 CAPSULE DAILY)
     Route: 048
     Dates: start: 20100921, end: 20130503

REACTIONS (1)
  - Dry mouth [Recovered/Resolved]
